FAERS Safety Report 8493305-9 (Version None)
Quarter: 2012Q3

REPORT INFORMATION
  Report Type: 
  Country: None (occurrence: None)
  Receive Date: 20120706
  Receipt Date: 20120703
  Transmission Date: 20120928
  Serious: No
  Sender: FDA-Public Use
  Company Number: US-PFIZER INC-2012160463

PATIENT
  Sex: Female
  Weight: 63.492 kg

DRUGS (2)
  1. PREMPRO [Suspect]
     Indication: HORMONE REPLACEMENT THERAPY
     Dosage: 0.3/1.5 MG, 1X/DAY
     Route: 048
  2. ZIAC [Concomitant]
     Indication: HYPERTENSION
     Dosage: 5/6.25 MG, 1X/DAY

REACTIONS (1)
  - MEDICATION RESIDUE [None]
